FAERS Safety Report 12696315 (Version 1)
Quarter: 2016Q3

REPORT INFORMATION
  Report Type: Spontaneous
  Country: US (occurrence: US)
  Receive Date: 20160830
  Receipt Date: 20160830
  Transmission Date: 20161109
  Serious: Yes (Death, Other)
  Sender: FDA-Public Use
  Company Number: US-ROCHE-1819972

PATIENT
  Age: 10 Year
  Sex: Male

DRUGS (4)
  1. FLUDARABINE [Concomitant]
     Active Substance: FLUDARABINE PHOSPHATE
     Route: 065
  2. CICLOSPORIN [Suspect]
     Active Substance: CYCLOSPORINE
     Indication: PROPHYLAXIS AGAINST GRAFT VERSUS HOST DISEASE
     Route: 065
  3. MYCOPHENOLATE MOFETIL. [Suspect]
     Active Substance: MYCOPHENOLATE MOFETIL
     Indication: PROPHYLAXIS AGAINST GRAFT VERSUS HOST DISEASE
     Route: 065
  4. TREOSULFAN [Concomitant]
     Active Substance: TREOSULFAN
     Route: 065

REACTIONS (8)
  - Respiratory tract infection [Unknown]
  - Respiratory distress [Recovering/Resolving]
  - Acute left ventricular failure [Unknown]
  - Cardiac failure [Unknown]
  - Pulmonary oedema [Recovering/Resolving]
  - Multiple organ dysfunction syndrome [Fatal]
  - Cough [Recovering/Resolving]
  - Nasal congestion [Recovering/Resolving]
